FAERS Safety Report 15958024 (Version 1)
Quarter: 2019Q1

REPORT INFORMATION
  Report Type: Spontaneous
  Country: US (occurrence: US)
  Receive Date: 20190213
  Receipt Date: 20190213
  Transmission Date: 20190417
  Serious: No
  Sender: FDA-Public Use
  Company Number: US-IGSA-SR10007381

PATIENT
  Age: 21 Year
  Sex: Male
  Weight: 81.1 kg

DRUGS (4)
  1. ALPHANINE SD [Suspect]
     Active Substance: COAGULATION FACTOR IX HUMAN
     Dosage: 1450 IU, SINGLE
     Dates: start: 20181120
  2. AMINOCAPROIC ACID. [Concomitant]
     Active Substance: AMINOCAPROIC ACID
     Dosage: 3 G, PRN
  3. ALPHANINE SD [Suspect]
     Active Substance: COAGULATION FACTOR IX HUMAN
     Indication: FACTOR IX DEFICIENCY
     Dosage: 5800 IU, SINGLE
     Route: 042
     Dates: start: 20181120
  4. MYDAYIS [Concomitant]
     Active Substance: AMPHETAMINE ASPARTATE\AMPHETAMINE SULFATE\DEXTROAMPHETAMINE SACCHARATE\DEXTROAMPHETAMINE SULFATE
     Dosage: 25 MG, QD

REACTIONS (1)
  - Rash [Recovered/Resolved]

NARRATIVE: CASE EVENT DATE: 20181120
